FAERS Safety Report 25156098 (Version 1)
Quarter: 2025Q2

REPORT INFORMATION
  Report Type: Spontaneous
  Country: GB (occurrence: GB)
  Receive Date: 20250403
  Receipt Date: 20250403
  Transmission Date: 20250716
  Serious: Yes (Death)
  Sender: ROCHE
  Company Number: GB-ROCHE-10000247824

PATIENT
  Sex: Male

DRUGS (3)
  1. PULMOZYME [Suspect]
     Active Substance: DORNASE ALFA
     Indication: Product used for unknown indication
     Dosage: DORNASE 2500IU NEB 2.5ML 30?DOSE 2500 UNIT?STRENGTH 2500 UNIT
     Route: 050
  2. TOBI PODHALER 28MG INHLR 224 [Concomitant]
  3. CAYSTON 75MG NEB SOL 84 [Concomitant]

REACTIONS (1)
  - Death [Fatal]
